FAERS Safety Report 10487778 (Version 4)
Quarter: 2014Q4

REPORT INFORMATION
  Report Type: Report from Study
  Country: FR (occurrence: FR)
  Receive Date: 20141001
  Receipt Date: 20141009
  Transmission Date: 20150528
  Serious: Yes (Hospitalization)
  Sender: FDA-Public Use
  Company Number: FR-009507513-1409FRA013210

PATIENT
  Age: 42 Year
  Sex: Female
  Weight: 55 kg

DRUGS (10)
  1. PEMBROLIZUMAB. [Suspect]
     Active Substance: PEMBROLIZUMAB
     Dosage: 10 MG/KG, QOW, CYCLE 7
     Route: 042
     Dates: start: 20140911, end: 20140911
  2. LYRICA [Concomitant]
     Active Substance: PREGABALIN
     Indication: PELVIC PAIN
     Dosage: 100 MG, BID
     Route: 048
     Dates: start: 20140224
  3. CYMBALTA [Concomitant]
     Active Substance: DULOXETINE HYDROCHLORIDE
     Indication: PELVIC PAIN
     Dosage: 60 MG, QD
     Route: 048
     Dates: start: 20140224
  4. DOLIPRANE [Concomitant]
     Active Substance: ACETAMINOPHEN
     Indication: PELVIC PAIN
     Dosage: 1G, PRN
     Route: 048
     Dates: start: 20140501
  5. SPASFON [Concomitant]
     Active Substance: PHLOROGLUCINOL
     Indication: ABDOMINAL PAIN
     Dosage: 80 MG, PRN
     Route: 048
     Dates: start: 20140724
  6. PEMBROLIZUMAB. [Suspect]
     Active Substance: PEMBROLIZUMAB
     Dosage: 10 MG/KG, QOW, CYCLE 6
     Route: 042
     Dates: start: 20140821, end: 20140821
  7. SERESTA [Concomitant]
     Active Substance: OXAZEPAM
     Indication: ANXIETY
     Dosage: 50 MG, QD
     Route: 048
     Dates: start: 20140224
  8. SMECTA [Concomitant]
     Active Substance: MONTMORILLONITE
     Indication: DIARRHOEA
     Dosage: 3 G, PRN
     Route: 048
     Dates: start: 20140821
  9. PEMBROLIZUMAB. [Suspect]
     Active Substance: PEMBROLIZUMAB
     Indication: NEOPLASM
     Dosage: 10 MG/KG, QOW, CYCLE 1-5
     Route: 042
     Dates: start: 20140612, end: 20140806
  10. IMODIUM [Concomitant]
     Active Substance: LOPERAMIDE HYDROCHLORIDE
     Indication: DIARRHOEA
     Dosage: 2 MG, PRN
     Route: 048
     Dates: start: 20140821

REACTIONS (2)
  - Lung infection [Recovered/Resolved]
  - Diarrhoea [Recovered/Resolved]

NARRATIVE: CASE EVENT DATE: 20140822
